FAERS Safety Report 14923392 (Version 1)
Quarter: 2018Q2

REPORT INFORMATION
  Report Type: Spontaneous
  Country: JP (occurrence: JP)
  Receive Date: 20180522
  Receipt Date: 20180522
  Transmission Date: 20180711
  Serious: Yes (Death, Other)
  Sender: FDA-Public Use
  Company Number: JP-BAYER-2018-092706

PATIENT

DRUGS (1)
  1. STIVARGA [Suspect]
     Active Substance: REGORAFENIB
     Indication: HEPATOCELLULAR CARCINOMA
     Dosage: 120 UNK, QD
     Route: 048
     Dates: start: 20171101, end: 20180511

REACTIONS (2)
  - Liver carcinoma ruptured [Fatal]
  - Hepatocellular carcinoma [None]

NARRATIVE: CASE EVENT DATE: 20180511
